FAERS Safety Report 14897157 (Version 2)
Quarter: 2019Q2

REPORT INFORMATION
  Report Type: Spontaneous
  Country: DK (occurrence: DK)
  Receive Date: 20180515
  Receipt Date: 20190419
  Transmission Date: 20190711
  Serious: Yes (Death, Hospitalization)
  Sender: FDA-Public Use
  Company Number: DK-009507513-1805DNK004125

PATIENT
  Age: 68 Year
  Sex: Female

DRUGS (5)
  1. KEYTRUDA [Suspect]
     Active Substance: PEMBROLIZUMAB
     Indication: LUNG NEOPLASM MALIGNANT
     Dosage: 50 MILLIGRAM, Q3W
     Dates: start: 20170522, end: 20180319
  2. POTASSIUM CHLORIDE. [Concomitant]
     Active Substance: POTASSIUM CHLORIDE
     Indication: HYPOKALAEMIA
     Dosage: STRENGTH: 750 MG.
     Route: 048
     Dates: start: 20171002
  3. CLOPIDOGREL [Concomitant]
     Active Substance: CLOPIDOGREL BISULFATE
     Indication: THROMBOSIS PROPHYLAXIS
     Dosage: STRENGTH: 75 MG.
     Route: 048
     Dates: start: 20180320
  4. SERTRALINE HYDROCHLORIDE. [Concomitant]
     Active Substance: SERTRALINE HYDROCHLORIDE
     Indication: DEPRESSION
     Dosage: STRENGTH: 50 MG
     Route: 048
     Dates: start: 20180119
  5. BENDROFLUMETHIAZIDE [Concomitant]
     Active Substance: BENDROFLUMETHIAZIDE
     Indication: BLOOD PRESSURE MEASUREMENT
     Dosage: STRENGTH: 2,5+573 MG.
     Route: 048
     Dates: start: 20121203, end: 20180410

REACTIONS (23)
  - Mobility decreased [Not Recovered/Not Resolved]
  - Vomiting [Unknown]
  - Confusional state [Unknown]
  - Balance disorder [Not Recovered/Not Resolved]
  - Fatigue [Not Recovered/Not Resolved]
  - Fall [Recovered/Resolved]
  - Speech disorder [Unknown]
  - Anal incontinence [Recovered/Resolved]
  - Dizziness [Unknown]
  - Encephalitis [Fatal]
  - Apathy [Not Recovered/Not Resolved]
  - Eye movement disorder [Not Recovered/Not Resolved]
  - Foaming at mouth [Recovered/Resolved]
  - Aphasia [Recovered/Resolved]
  - Headache [Not Recovered/Not Resolved]
  - Hemiparesis [Unknown]
  - Depressed level of consciousness [Recovered/Resolved]
  - Epilepsy [Unknown]
  - White matter lesion [Not Recovered/Not Resolved]
  - Cerebral thrombosis [Unknown]
  - Cognitive disorder [Not Recovered/Not Resolved]
  - Malaise [Not Recovered/Not Resolved]
  - Postictal paralysis [Unknown]

NARRATIVE: CASE EVENT DATE: 2018
